FAERS Safety Report 23179647 (Version 1)
Quarter: 2023Q4

REPORT INFORMATION
  Report Type: Spontaneous
  Country: ES (occurrence: ES)
  Receive Date: 20231114
  Receipt Date: 20231114
  Transmission Date: 20240110
  Serious: Yes (Other)
  Sender: FDA-Public Use
  Company Number: ES-PFIZER INC-PV202300177802

PATIENT
  Age: 42 Year
  Sex: Female

DRUGS (4)
  1. FULVESTRANT [Suspect]
     Active Substance: FULVESTRANT
     Indication: Product used for unknown indication
     Dosage: UNK
     Route: 065
  2. PALBOCICLIB [Suspect]
     Active Substance: PALBOCICLIB
     Indication: Product used for unknown indication
     Dosage: 125 MILLIGRAM, CYCLICAL (125 MG, CYCLIC (125 MG/DAY (DAY 1-DAY 21) EVERY 28 DAYS)
     Route: 065
  3. PALBOCICLIB [Suspect]
     Active Substance: PALBOCICLIB
     Dosage: 125 MILLIGRAM, CYCLICAL (125 MG, CYCLIC (DAY 1-DAY 21) EVERY 28 DAYS)
     Route: 065
     Dates: start: 202308
  4. PALBOCICLIB [Suspect]
     Active Substance: PALBOCICLIB
     Dosage: 125 MILLIGRAM, CYCLICAL (125 MG, CYCLIC (DAY 1-DAY 21) EVERY 28 DAYS)
     Route: 065
     Dates: start: 20230602

REACTIONS (3)
  - Eyelid operation [Unknown]
  - Neoplasm progression [Unknown]
  - Osteosclerosis [Unknown]

NARRATIVE: CASE EVENT DATE: 20220101
